FAERS Safety Report 12088880 (Version 4)
Quarter: 2016Q2

REPORT INFORMATION
  Report Type: Spontaneous
  Country: JP (occurrence: JP)
  Receive Date: 20160218
  Receipt Date: 20160406
  Transmission Date: 20160815
  Serious: Yes (Hospitalization, Other)
  Sender: FDA-Public Use
  Company Number: JP-GLAXOSMITHKLINE-JP2016JPN020803

PATIENT
  Age: 17 Year
  Sex: Male
  Weight: 58 kg

DRUGS (9)
  1. LAMICTAL [Suspect]
     Active Substance: LAMOTRIGINE
     Dosage: 25 MG, BID
     Route: 048
     Dates: start: 20151118, end: 20151125
  2. MEIACT [Concomitant]
     Active Substance: CEFDITOREN PIVOXIL
     Dosage: 300 MG, 1D
  3. LAMICTAL [Suspect]
     Active Substance: LAMOTRIGINE
     Dosage: 25 MG, QD
     Route: 048
     Dates: start: 20151104, end: 20151117
  4. LACB-R POWDER [Concomitant]
     Dosage: 3 G, 1D
  5. LAMICTAL [Suspect]
     Active Substance: LAMOTRIGINE
     Indication: PARTIAL SEIZURES
     Dosage: 25 MG, QOD
     Route: 048
     Dates: start: 20151021, end: 20151103
  6. DEPAKENE-R TABLET [Concomitant]
     Dosage: 400 MG, BID
  7. ASVERIN (TIPEPIDINE HIBENZATE) [Concomitant]
     Active Substance: TIPEPIDINE HIBENZATE
     Dosage: 60 MG, 1D
  8. CARBOCISTEINE TABLETS [Concomitant]
     Dosage: 1500 MG, 1D
  9. CALONAL [Concomitant]
     Active Substance: ACETAMINOPHEN
     Dosage: 600 MG, 1D

REACTIONS (20)
  - Epidermal necrosis [Unknown]
  - Eye discharge [Recovering/Resolving]
  - Lip erosion [Recovering/Resolving]
  - Stevens-Johnson syndrome [Recovering/Resolving]
  - Mouth ulceration [Recovering/Resolving]
  - Erythema multiforme [Recovering/Resolving]
  - Conjunctivitis [Recovering/Resolving]
  - Skin degenerative disorder [Unknown]
  - Rash generalised [Recovering/Resolving]
  - Pyrexia [Recovering/Resolving]
  - Erythema of eyelid [Recovering/Resolving]
  - Oral mucosa erosion [Recovering/Resolving]
  - Conjunctival hyperaemia [Recovering/Resolving]
  - Oropharyngeal pain [Recovering/Resolving]
  - Scab [Unknown]
  - Drug eruption [Recovering/Resolving]
  - Dermatitis [Unknown]
  - Skin erosion [Recovering/Resolving]
  - Eyelid erosion [Recovering/Resolving]
  - Blister [Recovering/Resolving]

NARRATIVE: CASE EVENT DATE: 201511
